FAERS Safety Report 14292450 (Version 1)
Quarter: 2017Q4

REPORT INFORMATION
  Report Type: Spontaneous
  Country: US (occurrence: US)
  Receive Date: 20171215
  Receipt Date: 20171215
  Transmission Date: 20180321
  Serious: No
  Sender: FDA-Public Use
  Company Number: US-PERRIGO-16US023001

PATIENT
  Age: 90 Year
  Sex: Female

DRUGS (8)
  1. SYNTHROID [Concomitant]
     Active Substance: LEVOTHYROXINE SODIUM
     Indication: THYROID DISORDER
     Dosage: UNK
     Route: 065
  2. TROSPIUM CHLORIDE. [Suspect]
     Active Substance: TROSPIUM CHLORIDE
     Indication: INCONTINENCE
     Dosage: UNKNOWN, UNKNOWN
     Route: 048
     Dates: start: 201605
  3. OXYBUTYNIN. [Concomitant]
     Active Substance: OXYBUTYNIN CHLORIDE
     Indication: INCONTINENCE
     Dosage: 10 MG, QD
     Route: 065
     Dates: start: 20161204
  4. DETROL [Concomitant]
     Active Substance: TOLTERODINE TARTRATE
     Indication: INCONTINENCE
     Dosage: UNKNOWN, UNKNOWN
     Route: 065
     Dates: start: 201605
  5. MYRBETRIQ [Concomitant]
     Active Substance: MIRABEGRON
     Indication: INCONTINENCE
     Dosage: 50 MG, QD, OFF AND ON
     Route: 048
     Dates: start: 20160218
  6. ESTRACE [Concomitant]
     Active Substance: ESTRADIOL
     Indication: INCONTINENCE
     Dosage: UNKNOWN, THRICE WEEKLY
     Route: 067
     Dates: start: 201605
  7. SPIRONOLACTONE. [Concomitant]
     Active Substance: SPIRONOLACTONE
     Indication: PRODUCT USED FOR UNKNOWN INDICATION
     Dosage: UNK
     Route: 065
  8. VITAMINS NOS [Concomitant]
     Active Substance: VITAMINS
     Indication: PRODUCT USED FOR UNKNOWN INDICATION
     Dosage: UNK
     Route: 065

REACTIONS (1)
  - Drug ineffective [Unknown]

NARRATIVE: CASE EVENT DATE: 201605
